APPROVED DRUG PRODUCT: NINLARO
Active Ingredient: IXAZOMIB CITRATE
Strength: EQ 2.3MG BASE
Dosage Form/Route: CAPSULE;ORAL
Application: N208462 | Product #001
Applicant: TAKEDA PHARMACEUTICALS USA INC
Approved: Nov 20, 2015 | RLD: Yes | RS: No | Type: RX

PATENTS:
Patent 8871745 | Expires: Aug 6, 2027
Patent 9175017 | Expires: Jun 16, 2029
Patent 8003819 | Expires: Aug 6, 2027
Patent 7442830 | Expires: Nov 20, 2029
Patent 8530694 | Expires: Aug 6, 2027
Patent 8859504 | Expires: Jun 16, 2029
Patent 7687662 | Expires: Aug 6, 2027